FAERS Safety Report 10685133 (Version 1)
Quarter: 2014Q4

REPORT INFORMATION
  Report Type: Spontaneous
  Country: US (occurrence: None)
  Receive Date: 20141230
  Receipt Date: 20141230
  Transmission Date: 20150529
  Serious: No
  Sender: FDA-Public Use
  Company Number: None

PATIENT
  Age: 65 Year
  Sex: Female
  Weight: 92.53 kg

DRUGS (9)
  1. BELVIQ [Suspect]
     Active Substance: LORCASERIN HYDROCHLORIDE
     Indication: WEIGHT DECREASED
     Dosage: 10 MG TABLET, ONE PILL TWICE A DAY, TWICE DAILY, BY MOUTH
     Route: 048
     Dates: start: 20141201, end: 20141209
  2. LIPITOR [Concomitant]
     Active Substance: ATORVASTATIN CALCIUM
  3. HYDROXYZINE [Concomitant]
     Active Substance: HYDROXYZINE\HYDROXYZINE HYDROCHLORIDE
  4. JANUMET [Concomitant]
     Active Substance: METFORMIN HYDROCHLORIDE\SITAGLIPTIN PHOSPHATE
  5. AMLODIPINE [Concomitant]
     Active Substance: AMLODIPINE BESYLATE
  6. PREVACID [Concomitant]
     Active Substance: LANSOPRAZOLE
  7. ADVAIR DISKUS [Concomitant]
     Active Substance: FLUTICASONE PROPIONATE\SALMETEROL XINAFOATE
  8. HCTZ [Concomitant]
     Active Substance: HYDROCHLOROTHIAZIDE
  9. CLOBETASOL [Concomitant]
     Active Substance: CLOBETASOL

REACTIONS (6)
  - Urinary incontinence [None]
  - Balance disorder [None]
  - Fatigue [None]
  - Movement disorder [None]
  - Back pain [None]
  - Exercise tolerance decreased [None]

NARRATIVE: CASE EVENT DATE: 20141202
